FAERS Safety Report 5191079-0 (Version None)
Quarter: 2006Q4

REPORT INFORMATION
  Report Type: 
  Country: None (occurrence: None)
  Receive Date: 20061226
  Receipt Date: 20061128
  Transmission Date: 20070319
  Serious: Yes (Other)
  Sender: FDA-Public Use
  Company Number: 2006SE06415

PATIENT
  Age: 29826 Day
  Sex: Female

DRUGS (1)
  1. SEROQUEL [Suspect]
     Indication: ANXIETY
     Route: 048
     Dates: start: 20061125, end: 20061125

REACTIONS (3)
  - AFFECT LABILITY [None]
  - AGITATION [None]
  - HALLUCINATION [None]
